FAERS Safety Report 6114640-5 (Version None)
Quarter: 2009Q1

REPORT INFORMATION
  Report Type: 
  Country: None (occurrence: None)
  Receive Date: 20090313
  Receipt Date: 20090304
  Transmission Date: 20090719
  Serious: Yes (Hospitalization)
  Sender: FDA-Public Use
  Company Number: -BIOGENIDEC-2006BI001705

PATIENT
  Age: 63 Year
  Sex: Male

DRUGS (2)
  1. AVONEX [Suspect]
     Indication: MULTIPLE SCLEROSIS
     Route: 030
     Dates: start: 19990101, end: 20040101
  2. NOVANTRONE [Concomitant]
     Indication: MULTIPLE SCLEROSIS

REACTIONS (1)
  - THROMBOSIS [None]
